FAERS Safety Report 6412031-0 (Version None)
Quarter: 2009Q4

REPORT INFORMATION
  Report Type: 
  Country: None (occurrence: None)
  Receive Date: 20091023
  Receipt Date: 20091008
  Transmission Date: 20100525
  Serious: Yes (Life-Threatening, Hospitalization)
  Sender: FDA-Public Use
  Company Number: FR-PFIZER INC-2009284728

PATIENT
  Age: 75 Year

DRUGS (7)
  1. IRINOTECAN HCL [Suspect]
     Indication: COLORECTAL CANCER
     Dosage: 120 MG/M2, CYCLIC
     Route: 042
     Dates: start: 20060116, end: 20060116
  2. FLUOROURACIL [Suspect]
     Indication: COLORECTAL CANCER
     Dosage: 400 MG/M2, CYCLIC
     Route: 040
     Dates: start: 20060116, end: 20060116
  3. FLUOROURACIL [Suspect]
     Dosage: 1920 MG/M2, CYCLIC
     Route: 041
     Dates: start: 20060116, end: 20060118
  4. FOLINIC ACID [Suspect]
     Indication: COLORECTAL CANCER
     Dosage: 200 MG/M2, CYCLIC
     Route: 042
     Dates: start: 20060116, end: 20060116
  5. MEDROL [Concomitant]
     Dosage: 2 TABS DAILY, FROM DAY 2 TO DAY 6
     Route: 048
  6. ZOPHREN [Concomitant]
     Dosage: 2 TABS DAILY, FROM DAY 1 TO DAY 3
     Route: 048
  7. PRIMPERAN [Concomitant]
     Dosage: 3 TABS DAILY
     Route: 048

REACTIONS (5)
  - ANXIETY [None]
  - ASTHENIA [None]
  - DIARRHOEA [None]
  - DYSPEPSIA [None]
  - VOMITING [None]
